FAERS Safety Report 22145771 (Version 1)
Quarter: 2023Q1

REPORT INFORMATION
  Report Type: Spontaneous
  Country: FR (occurrence: FR)
  Receive Date: 20230328
  Receipt Date: 20230328
  Transmission Date: 20230418
  Serious: Yes (Hospitalization)
  Sender: FDA-Public Use
  Company Number: None

PATIENT
  Age: 72 Year
  Sex: Male

DRUGS (14)
  1. GLIMEPIRIDE [Suspect]
     Active Substance: GLIMEPIRIDE
     Indication: Type 2 diabetes mellitus
     Dates: end: 20230215
  2. JANUMET [Suspect]
     Active Substance: METFORMIN HYDROCHLORIDE\SITAGLIPTIN PHOSPHATE
     Indication: Type 2 diabetes mellitus
     Dosage: STRENGTH: 50 MG/1000 MG
     Dates: end: 20230216
  3. GABAPENTIN [Concomitant]
     Active Substance: GABAPENTIN
  4. PANTOPRAZOLE [Concomitant]
     Active Substance: PANTOPRAZOLE
  5. LERCANIDIPINE [Concomitant]
     Active Substance: LERCANIDIPINE
  6. SINEMET [Concomitant]
     Active Substance: CARBIDOPA\LEVODOPA
  7. SIMVASTATIN [Concomitant]
     Active Substance: SIMVASTATIN
  8. BENSERAZIDE HYDROCHLORIDE\LEVODOPA [Concomitant]
     Active Substance: BENSERAZIDE HYDROCHLORIDE\LEVODOPA
  9. VALPROATE SODIUM [Concomitant]
     Active Substance: VALPROATE SODIUM
  10. FUROSEMIDE [Concomitant]
     Active Substance: FUROSEMIDE
  11. ACEBUTOLOL [Concomitant]
     Active Substance: ACEBUTOLOL
  12. FOLIC ACID [Concomitant]
     Active Substance: FOLIC ACID
  13. IRBESARTAN [Concomitant]
     Active Substance: IRBESARTAN
  14. KARDEGIC [Concomitant]
     Active Substance: ASPIRIN DL-LYSINE

REACTIONS (1)
  - Hypoglycaemic coma [Recovered/Resolved]

NARRATIVE: CASE EVENT DATE: 20230215
